FAERS Safety Report 4734152-0 (Version None)
Quarter: 2005Q3

REPORT INFORMATION
  Report Type: 
  Country: None (occurrence: None)
  Receive Date: 20050729
  Receipt Date: 20050718
  Transmission Date: 20060218
  Serious: Yes (Other)
  Sender: FDA-Public Use
  Company Number: 2005104854

PATIENT
  Age: 40 Year
  Sex: Female

DRUGS (10)
  1. GEODON [Suspect]
     Indication: IRRITABILITY
     Dosage: 120 MG (60 MG, 2 IN 1 D), ORAL
     Route: 048
  2. GEODON [Suspect]
     Indication: MOOD SWINGS
     Dosage: 120 MG (60 MG, 2 IN 1 D), ORAL
     Route: 048
  3. GEODON [Suspect]
     Indication: PSYCHOTIC DISORDER
     Dosage: 120 MG (60 MG, 2 IN 1 D), ORAL
     Route: 048
  4. NEURONTIN [Suspect]
     Indication: ATTENTION DEFICIT/HYPERACTIVITY DISORDER
     Dosage: ORAL
     Route: 048
     Dates: start: 20050101
  5. NEURONTIN [Suspect]
     Indication: BIPOLAR DISORDER
     Dosage: ORAL
     Route: 048
     Dates: start: 20050101
  6. RISPERDAL [Suspect]
     Indication: ILL-DEFINED DISORDER
  7. KLONOPIN [Concomitant]
  8. FLEXERIL [Concomitant]
  9. METOPROLOL TARTRATE [Concomitant]
  10. HYOSCYAMINE (HYOSCYAMINE) [Concomitant]

REACTIONS (18)
  - ABASIA [None]
  - ADVERSE DRUG REACTION [None]
  - ALCOHOLISM [None]
  - ANXIETY [None]
  - ARTHRITIS [None]
  - ATTENTION DEFICIT/HYPERACTIVITY DISORDER [None]
  - BIPOLAR DISORDER [None]
  - CARTILAGE INJURY [None]
  - CONDITION AGGRAVATED [None]
  - DISTURBANCE IN ATTENTION [None]
  - DRUG DOSE OMISSION [None]
  - GAIT DISTURBANCE [None]
  - HEART RATE INCREASED [None]
  - PSYCHOMOTOR HYPERACTIVITY [None]
  - REFUSAL OF TREATMENT BY PATIENT [None]
  - TENDONITIS [None]
  - THINKING ABNORMAL [None]
  - WEIGHT INCREASED [None]
